FAERS Safety Report 10456150 (Version 1)
Quarter: 2014Q3

REPORT INFORMATION
  Report Type: Spontaneous
  Country: IE (occurrence: IE)
  Receive Date: 20140916
  Receipt Date: 20140916
  Transmission Date: 20150326
  Serious: Yes (Other)
  Sender: FDA-Public Use
  Company Number: 2014SP005253

PATIENT
  Age: 26 Year
  Sex: Male
  Weight: 77 kg

DRUGS (4)
  1. IFOSFAMIDE. [Suspect]
     Active Substance: IFOSFAMIDE
     Indication: TESTIS CANCER
  2. CISPLATIN. [Suspect]
     Active Substance: CISPLATIN
     Indication: TESTIS CANCER
  3. BLEOMYCIN [Suspect]
     Active Substance: BLEOMYCIN SULFATE
     Indication: TESTIS CANCER
  4. ETOPOSIDE. [Suspect]
     Active Substance: ETOPOSIDE
     Indication: TESTIS CANCER

REACTIONS (11)
  - Pulmonary embolism [Recovering/Resolving]
  - Embolism [Recovering/Resolving]
  - Cerebrovascular accident [Recovering/Resolving]
  - VIIth nerve paralysis [Recovering/Resolving]
  - Muscular weakness [Recovering/Resolving]
  - Ischaemic cerebral infarction [Recovering/Resolving]
  - Pleuritic pain [Recovering/Resolving]
  - Paraesthesia [Recovering/Resolving]
  - Dyspnoea [Recovering/Resolving]
  - Carotid artery occlusion [Recovering/Resolving]
  - Dysarthria [Recovering/Resolving]
